FAERS Safety Report 10890393 (Version 2)
Quarter: 2015Q1

REPORT INFORMATION
  Report Type: Report from Study
  Country: IE (occurrence: IE)
  Receive Date: 20150305
  Receipt Date: 20150325
  Transmission Date: 20150721
  Serious: Yes (Death)
  Sender: FDA-Public Use
  Company Number: IE-BRISTOL-MYERS SQUIBB COMPANY-21555115

PATIENT
  Age: 79 Year
  Sex: Male

DRUGS (1)
  1. IPILIMUMAB [Suspect]
     Active Substance: IPILIMUMAB
     Indication: PRODUCT USED FOR UNKNOWN INDICATION
     Dosage: UNK
     Route: 042
     Dates: start: 20141021

REACTIONS (6)
  - Decreased appetite [Unknown]
  - Death [Fatal]
  - Balance disorder [Unknown]
  - Diarrhoea [Unknown]
  - Ear pain [Unknown]
  - Fatigue [Unknown]

NARRATIVE: CASE EVENT DATE: 201410
